FAERS Safety Report 5471443-2 (Version None)
Quarter: 2007Q3

REPORT INFORMATION
  Report Type: 
  Country: None (occurrence: None)
  Receive Date: 20070928
  Receipt Date: 20061019
  Transmission Date: 20080115
  Serious: No
  Sender: FDA-Public Use
  Company Number: US-BRISTOL-MYERS SQUIBB COMPANY-13547260

PATIENT
  Age: 60 Year
  Sex: Male
  Weight: 119 kg

DRUGS (12)
  1. DEFINITY [Suspect]
     Indication: ECHOCARDIOGRAM
     Dates: start: 20061019
  2. ASPIRIN [Concomitant]
  3. ATENOLOL [Concomitant]
  4. BENICAR [Concomitant]
  5. CRESTOR [Concomitant]
  6. DITROPAN [Concomitant]
  7. FISH OIL [Concomitant]
  8. HYDROCHLOROTHIAZIDE [Concomitant]
  9. HYTRIN [Concomitant]
  10. KLOR-CON [Concomitant]
  11. NITROQUICK [Concomitant]
  12. PEPCID [Concomitant]

REACTIONS (1)
  - BACK PAIN [None]
